FAERS Safety Report 10781232 (Version 1)
Quarter: 2015Q1

REPORT INFORMATION
  Report Type: Report from Study
  Country: EG (occurrence: EG)
  Receive Date: 20150210
  Receipt Date: 20150210
  Transmission Date: 20150721
  Serious: Yes (Hospitalization)
  Sender: FDA-Public Use
  Company Number: EG-SA-2015SA014323

PATIENT
  Age: 10 Year
  Sex: Female

DRUGS (1)
  1. LANTUS [Suspect]
     Active Substance: INSULIN GLARGINE
     Indication: TYPE 1 DIABETES MELLITUS
     Route: 058
     Dates: start: 20141008

REACTIONS (2)
  - Hyperglycaemia [Unknown]
  - Hepatitis A [Unknown]

NARRATIVE: CASE EVENT DATE: 20150123
